FAERS Safety Report 11927144 (Version 2)
Quarter: 2016Q1

REPORT INFORMATION
  Report Type: Spontaneous
  Country: US (occurrence: US)
  Receive Date: 20160119
  Receipt Date: 20160128
  Transmission Date: 20160526
  Serious: No
  Sender: FDA-Public Use
  Company Number: US-APOTEX-2015AP014826

PATIENT

DRUGS (1)
  1. OLOPATADINE HYDROCHLORIDE NASAL [Suspect]
     Active Substance: OLOPATADINE HYDROCHLORIDE
     Indication: PRODUCT USED FOR UNKNOWN INDICATION
     Dosage: 665 MCG PER SPRAY
     Route: 065

REACTIONS (1)
  - Complication associated with device [Unknown]
